FAERS Safety Report 24925184 (Version 1)
Quarter: 2025Q1

REPORT INFORMATION
  Report Type: Report from Study
  Country: US (occurrence: US)
  Receive Date: 20250204
  Receipt Date: 20250204
  Transmission Date: 20250408
  Serious: No
  Sender: EXELIXIS
  Company Number: US-EXELIXIS-CABO-24078096

PATIENT
  Age: 69 Year
  Sex: Male

DRUGS (12)
  1. CABOMETYX [Suspect]
     Active Substance: CABOZANTINIB S-MALATE
     Indication: Renal cell carcinoma
     Dosage: 40 MG, QD
     Dates: start: 20240430
  2. CABOMETYX [Suspect]
     Active Substance: CABOZANTINIB S-MALATE
     Dosage: 40 MG, QD
  3. OPDIVO [Suspect]
     Active Substance: NIVOLUMAB
     Indication: Renal cell carcinoma
     Dosage: UNK UNK, Q4WEEKS
     Dates: start: 20240430
  4. HYDROCORTISONE [Concomitant]
     Active Substance: HYDROCORTISONE
  5. CYCLOBENZAPRINE [Concomitant]
     Active Substance: CYCLOBENZAPRINE
  6. GABAPENTIN [Concomitant]
     Active Substance: GABAPENTIN
  7. ONDANSETRON [Concomitant]
     Active Substance: ONDANSETRON
  8. LOSARTAN [Concomitant]
     Active Substance: LOSARTAN
  9. TAMSULOSIN [Concomitant]
     Active Substance: TAMSULOSIN
  10. ROSUVASTATIN [Concomitant]
     Active Substance: ROSUVASTATIN
  11. CETIRIZINE [Concomitant]
     Active Substance: CETIRIZINE HYDROCHLORIDE
  12. FINASTERIDE [Concomitant]
     Active Substance: FINASTERIDE

REACTIONS (10)
  - Acne [Not Recovered/Not Resolved]
  - Gingival ulceration [Not Recovered/Not Resolved]
  - Muscle spasms [Not Recovered/Not Resolved]
  - Abdominal pain [Not Recovered/Not Resolved]
  - Constipation [Not Recovered/Not Resolved]
  - Diarrhoea [Recovering/Resolving]
  - Dysphonia [Not Recovered/Not Resolved]
  - Ageusia [Not Recovered/Not Resolved]
  - Insomnia [Not Recovered/Not Resolved]
  - Oropharyngeal discomfort [Unknown]

NARRATIVE: CASE EVENT DATE: 20240601
